FAERS Safety Report 5210610-X (Version None)
Quarter: 2006Q4

REPORT INFORMATION
  Report Type: 
  Country: None (occurrence: None)
  Receive Date: 20061106
  Receipt Date: 20060831
  Transmission Date: 20070319
  Serious: No
  Sender: FDA-Public Use
  Company Number: VNL_0196_2006

PATIENT
  Age: 62 Year
  Sex: Male
  Weight: 78.2455 kg

DRUGS (10)
  1. APOKYN [Suspect]
     Indication: PARKINSON'S DISEASE
     Dosage: 0.2 ML 2X/DAY SC
     Route: 058
     Dates: start: 20060810
  2. APOKYN [Suspect]
     Indication: PARKINSON'S DISEASE
     Dosage: 0.2 ML 2X/DAY SC
     Route: 058
     Dates: start: 20060817
  3. COMTAN [Concomitant]
  4. SINEMET [Concomitant]
  5. MIRAPAX [Concomitant]
  6. ZOLOFT [Concomitant]
  7. ZOLOFT [Concomitant]
  8. TRAZODONE HCL [Concomitant]
  9. SEROQUEL [Concomitant]
  10. PRAVACHOL [Concomitant]

REACTIONS (1)
  - INJECTION SITE BRUISING [None]
